FAERS Safety Report 7499720-4 (Version None)
Quarter: 2011Q2

REPORT INFORMATION
  Report Type: 
  Country: None (occurrence: None)
  Receive Date: 20110524
  Receipt Date: 20110209
  Transmission Date: 20111010
  Serious: No
  Sender: FDA-Public Use
  Company Number: US-NOVEN-11US001764

PATIENT
  Sex: Female
  Weight: 29.478 kg

DRUGS (2)
  1. DAYTRANA [Suspect]
     Dosage: 40 MG, UNK
  2. DAYTRANA [Suspect]
     Indication: ATTENTION DEFICIT/HYPERACTIVITY DISORDER
     Dosage: 40 MG, UNK
     Route: 062
     Dates: start: 20080101

REACTIONS (6)
  - DRUG PRESCRIBING ERROR [None]
  - NO ADVERSE EVENT [None]
  - PRODUCT QUALITY ISSUE [None]
  - INCORRECT DRUG ADMINISTRATION DURATION [None]
  - DRUG ADMINISTRATION ERROR [None]
  - WRONG TECHNIQUE IN DRUG USAGE PROCESS [None]
